FAERS Safety Report 7104956-8 (Version None)
Quarter: 2010Q4

REPORT INFORMATION
  Report Type: 
  Country: None (occurrence: None)
  Receive Date: 20101116
  Receipt Date: 20101103
  Transmission Date: 20110411
  Serious: Yes (Hospitalization)
  Sender: FDA-Public Use
  Company Number: PHHO2005ZA17519

PATIENT
  Sex: Female
  Weight: 12.1 kg

DRUGS (4)
  1. ELIDEL [Suspect]
     Indication: DERMATITIS ATOPIC
     Dosage: APPLIED TWICE DAILY
     Route: 061
     Dates: start: 20041019
  2. PROCUTAN [Concomitant]
     Indication: DERMATITIS ATOPIC
     Dosage: APPLIED TWICE DAILY
     Route: 061
     Dates: start: 20041019
  3. ADVANTAN [Concomitant]
     Indication: DERMATITIS ATOPIC
     Dosage: APPLIED TWICE DAILY
     Route: 061
     Dates: start: 20041019
  4. EPILIM [Concomitant]

REACTIONS (4)
  - CONJUNCTIVITIS [None]
  - EYE DISCHARGE [None]
  - FAECES DISCOLOURED [None]
  - UPPER RESPIRATORY TRACT INFECTION [None]
